FAERS Safety Report 9172498 (Version 1)
Quarter: 2013Q1

REPORT INFORMATION
  Report Type: Spontaneous
  Country: US (occurrence: US)
  Receive Date: 20130319
  Receipt Date: 20130319
  Transmission Date: 20140127
  Serious: Yes (Other)
  Sender: FDA-Public Use
  Company Number: US-PFIZER INC-2013086884

PATIENT
  Age: 39 Year
  Sex: Male
  Weight: 88.44 kg

DRUGS (3)
  1. ZITHROMAX [Suspect]
     Indication: INFECTION
     Dosage: 250 MG, UNK
  2. ZITHROMAX [Suspect]
     Dosage: 250 MG, UNK
     Dates: end: 201302
  3. ZITHROMAX [Suspect]
     Dosage: 500 MG, UNK
     Dates: start: 201302, end: 201302

REACTIONS (6)
  - Chest pain [Recovered/Resolved]
  - Vision blurred [Recovered/Resolved]
  - Paraesthesia [Recovered/Resolved]
  - Feeling abnormal [Recovered/Resolved]
  - Dizziness [Recovered/Resolved]
  - Infection [Recovered/Resolved]
